FAERS Safety Report 5032916-X (Version None)
Quarter: 2006Q2

REPORT INFORMATION
  Report Type: 
  Country: None (occurrence: None)
  Receive Date: 20060515
  Receipt Date: 20060329
  Transmission Date: 20061013
  Serious: No
  Sender: FDA-Public Use
  Company Number: S06-USA-00912-01

PATIENT
  Age: 78 Year
  Sex: Male

DRUGS (9)
  1. NAMENDA [Suspect]
     Indication: DEMENTIA ALZHEIMER'S TYPE
     Dosage: 5 MG QD PO
     Route: 048
     Dates: start: 20060317, end: 20060323
  2. NAMENDA [Suspect]
     Indication: DEMENTIA ALZHEIMER'S TYPE
     Dosage: 5 MG BID PO
     Route: 048
     Dates: start: 20060324
  3. LASIX [Concomitant]
  4. DESYREL [Concomitant]
  5. CARAFATE [Concomitant]
  6. SEROQUEL [Concomitant]
  7. VITAMIN B INJECTIONS [Concomitant]
  8. CALCIUM CARBONATE [Concomitant]
  9. ASPIRIN [Concomitant]

REACTIONS (3)
  - CONFUSIONAL STATE [None]
  - DIFFICULTY IN WALKING [None]
  - HALLUCINATION, VISUAL [None]
